FAERS Safety Report 4541875-5 (Version None)
Quarter: 2004Q4

REPORT INFORMATION
  Report Type: 
  Country: None (occurrence: None)
  Receive Date: 20041230
  Receipt Date: 20040713
  Transmission Date: 20050328
  Serious: Yes (Death, Hospitalization)
  Sender: FDA-Public Use
  Company Number: PHBS2004JP09377

PATIENT
  Age: 60 Year
  Sex: Male

DRUGS (1)
  1. GLEEVEC [Suspect]
     Indication: GASTROINTESTINAL STROMAL TUMOUR
     Dosage: 300 MG - 400 MG/D
     Route: 048
     Dates: start: 20021107, end: 20040617

REACTIONS (3)
  - CEREBRAL ISCHAEMIA [None]
  - HAEMORRHAGIC CEREBRAL INFARCTION [None]
  - VASCULAR CALCIFICATION [None]
